FAERS Safety Report 15523124 (Version 1)
Quarter: 2018Q4

REPORT INFORMATION
  Report Type: Spontaneous
  Country: US (occurrence: US)
  Receive Date: 20181015
  Receipt Date: 20181015
  Transmission Date: 20190205
  Serious: No
  Sender: FDA-Public Use
  Company Number: None

PATIENT
  Age: 55 Year
  Sex: Female

DRUGS (1)
  1. COSENTYX [Suspect]
     Active Substance: SECUKINUMAB
     Route: 058
     Dates: start: 201808

REACTIONS (4)
  - Wrong product administered [None]
  - Feeling hot [None]
  - Arthralgia [None]
  - Product dose omission [None]

NARRATIVE: CASE EVENT DATE: 20181012
